FAERS Safety Report 9999439 (Version 1)
Quarter: 2014Q1

REPORT INFORMATION
  Report Type: Spontaneous
  Country: US (occurrence: US)
  Receive Date: 20140312
  Receipt Date: 20140312
  Transmission Date: 20141002
  Serious: Yes (Death, Hospitalization, Other)
  Sender: FDA-Public Use
  Company Number: US-BAXTER-2014BAX011603

PATIENT
  Sex: Male

DRUGS (6)
  1. DIANEAL LOW CALCIUM [Suspect]
     Indication: PERITONEAL DIALYSIS
     Route: 033
     Dates: start: 201108, end: 20140304
  2. DIANEAL LOW CALCIUM [Suspect]
     Route: 033
     Dates: start: 201108
  3. DIANEAL LOW CALCIUM [Suspect]
     Indication: PERITONEAL DIALYSIS
     Route: 033
     Dates: start: 201108, end: 20140304
  4. DIANEAL LOW CALCIUM [Suspect]
     Route: 033
     Dates: start: 201108
  5. DIANEAL LOW CALCIUM [Suspect]
     Indication: PERITONEAL DIALYSIS
     Route: 033
     Dates: start: 201108, end: 20140304
  6. DIANEAL LOW CALCIUM [Suspect]
     Route: 033
     Dates: start: 201108

REACTIONS (4)
  - Death [Fatal]
  - Chest pain [Unknown]
  - Circulatory collapse [Unknown]
  - Cardiac arrest [Unknown]
